FAERS Safety Report 23837988 (Version 1)
Quarter: 2024Q2

REPORT INFORMATION
  Report Type: Spontaneous
  Country: CH (occurrence: CH)
  Receive Date: 20240509
  Receipt Date: 20240509
  Transmission Date: 20240716
  Serious: Yes (Hospitalization, Other)
  Sender: FDA-Public Use
  Company Number: None

PATIENT
  Age: 81 Year
  Sex: Male

DRUGS (9)
  1. KEYTRUDA [Suspect]
     Active Substance: PEMBROLIZUMAB
     Indication: Lung neoplasm malignant
     Dosage: 200 MILLIGRAM, Q3W
     Route: 041
     Dates: start: 20240329, end: 20240329
  2. CARBOPLATIN [Suspect]
     Active Substance: CARBOPLATIN
     Indication: Lung neoplasm malignant
     Dosage: FIRST CYCLE OF CHEMOTHERAPY
     Route: 041
     Dates: start: 20240329, end: 20240329
  3. PEMETREXED [Suspect]
     Active Substance: PEMETREXED
     Indication: Lung neoplasm malignant
     Dosage: FIRST CYCLE OF CHEMOTHERAPY
     Route: 041
     Dates: start: 20240329, end: 20240329
  4. SINTROM [Concomitant]
     Active Substance: ACENOCOUMAROL
     Dosage: ACCORDING TO CHRONIC THERAPY SCHEME
     Route: 048
  5. BISOPROLOL FUMARATE [Concomitant]
     Active Substance: BISOPROLOL FUMARATE
     Dosage: CHRONIC THERAPY
     Route: 048
  6. COVERAM [Concomitant]
     Active Substance: AMLODIPINE\PERINDOPRIL
     Dosage: CHRONIC THERAPY
     Route: 048
  7. METOLAZONE [Concomitant]
     Active Substance: METOLAZONE
     Dosage: CHRONIC THERAPY
     Route: 048
  8. ATORVASTATIN [Concomitant]
     Active Substance: ATORVASTATIN
     Dosage: CHRONIC THERAPY
     Route: 048
  9. FOLIC ACID [Concomitant]
     Active Substance: FOLIC ACID
     Dosage: CHRONIC THERAPY
     Route: 048

REACTIONS (4)
  - Febrile neutropenia [Recovered/Resolved]
  - Stomatitis [Recovering/Resolving]
  - Toxic skin eruption [Recovering/Resolving]
  - Pancytopenia [Recovering/Resolving]

NARRATIVE: CASE EVENT DATE: 20240405
